FAERS Safety Report 26126295 (Version 1)
Quarter: 2025Q4

REPORT INFORMATION
  Report Type: Spontaneous
  Country: EU (occurrence: EU)
  Receive Date: 20251205
  Receipt Date: 20251205
  Transmission Date: 20260117
  Serious: Yes (Other)
  Sender: BAXTER
  Company Number: None

PATIENT
  Age: 43 Year
  Sex: Female

DRUGS (12)
  1. PROPOFOL [Suspect]
     Active Substance: PROPOFOL
     Indication: Anaesthesia
     Dosage: TREATMENT DURATION: FROM 8:00 TO 17:00.
     Route: 042
     Dates: start: 20251110, end: 20251110
  2. FIBRINOGEN HUMAN [Suspect]
     Active Substance: FIBRINOGEN HUMAN
     Indication: Haemorrhage
     Dosage: 3 G (1 UNIT IN TOTAL)
     Route: 042
     Dates: start: 20251110, end: 20251110
  3. CEFAZOLIN SODIUM [Suspect]
     Active Substance: CEFAZOLIN SODIUM
     Indication: Prophylaxis
     Dosage: 4 G (1 UNIT IN TOTAL) (ADMINISTER 2 GRAMS AT 8:00, THEN 1 GRAM AT 12:00 AND AGAIN AT 16:00)
     Route: 042
     Dates: start: 20251110, end: 20251110
  4. TRANEXAMIC ACID [Suspect]
     Active Substance: TRANEXAMIC ACID
     Indication: Haemorrhage
     Dosage: 2 G (1 UNIT IN TOTAL) (GIVE 1 GRAM INITIALLY, THEN 1 GRAM EVERY 8 HOURS (STARTING AT 9:00)
     Route: 065
     Dates: start: 20251110, end: 20251110
  5. REMIFENTANIL HYDROCHLORIDE [Suspect]
     Active Substance: REMIFENTANIL HYDROCHLORIDE
     Indication: Anaesthesia
     Dosage: 8:00 AM AND 5:00 PM
     Route: 041
     Dates: start: 20251110, end: 20251110
  6. NOREPINEPHRINE BITARTRATE [Concomitant]
     Active Substance: NOREPINEPHRINE BITARTRATE
     Indication: Blood pressure fluctuation
     Dosage: 0.45 MG, 1X AN HOUR (SESSIONS SCHEDULED FROM 08:00 TO 09:00, THEN FROM 11:40 TO 13:00, AND FINALLY F
     Route: 042
     Dates: start: 20251110, end: 20251110
  7. Solupred [Concomitant]
     Dosage: UNK
     Route: 065
  8. DEXAMETHASONE [Concomitant]
     Active Substance: DEXAMETHASONE
     Dosage: UNK
     Route: 065
  9. LEVETIRACETAM [Concomitant]
     Active Substance: LEVETIRACETAM
     Dosage: UNK
     Route: 065
  10. MORPHINE [Concomitant]
     Active Substance: MORPHINE
     Dosage: UNK
     Route: 065
  11. ATRACURIUM [Concomitant]
     Active Substance: ATRACURIUM
     Dosage: UNK
     Route: 065
  12. ACETAMINOPHEN [Concomitant]
     Active Substance: ACETAMINOPHEN
     Dosage: UNK
     Route: 065

REACTIONS (1)
  - Anaphylactoid reaction [Recovered/Resolved]

NARRATIVE: CASE EVENT DATE: 20251110
